FAERS Safety Report 20741507 (Version 1)
Quarter: 2022Q2

REPORT INFORMATION
  Report Type: Other
  Country: IT (occurrence: IT)
  Receive Date: 20220422
  Receipt Date: 20220422
  Transmission Date: 20220720
  Serious: Yes (Hospitalization)
  Sender: FDA-Public Use
  Company Number: None

PATIENT
  Age: 53 Year
  Sex: Female

DRUGS (2)
  1. ATEZOLIZUMAB [Suspect]
     Active Substance: ATEZOLIZUMAB
     Indication: Breast neoplasm
     Route: 065
     Dates: start: 20200211, end: 20210916
  2. ABRAXANE [Suspect]
     Active Substance: PACLITAXEL
     Indication: Breast neoplasm
     Route: 042
     Dates: start: 20200211, end: 20210916

REACTIONS (1)
  - Anaemia [Recovered/Resolved]

NARRATIVE: CASE EVENT DATE: 20200311
